FAERS Safety Report 6779165-2 (Version None)
Quarter: 2010Q2

REPORT INFORMATION
  Report Type: 
  Country: None (occurrence: None)
  Receive Date: 20100618
  Receipt Date: 20100609
  Transmission Date: 20101027
  Serious: Yes (Other)
  Sender: FDA-Public Use
  Company Number: GB-SANOFI-AVENTIS-2010SA033358

PATIENT
  Age: 65 Year
  Sex: Male

DRUGS (19)
  1. METRONIDAZOLE [Suspect]
     Route: 065
  2. BENZYLPENICILLIN [Suspect]
     Route: 065
  3. FLOXACILLIN SODIUM [Suspect]
     Route: 065
  4. TIMENTIN [Suspect]
     Route: 042
     Dates: start: 20100425, end: 20100425
  5. ASPIRIN [Concomitant]
  6. BETAMETHASONE [Concomitant]
  7. BUMETANIDE [Concomitant]
  8. DIGOXIN [Concomitant]
  9. FERROUS SULFATE TAB [Concomitant]
  10. GLICLAZIDE [Concomitant]
  11. METFORMIN HCL [Concomitant]
  12. MORPHINE [Concomitant]
  13. NICOTINE [Concomitant]
  14. PREDNISOLONE [Concomitant]
  15. RAMIPRIL [Concomitant]
  16. RANITIDINE [Concomitant]
  17. SALBUTAMOL [Concomitant]
  18. SPIRONOLACTONE [Concomitant]
  19. TIOTROPIUM BROMIDE [Concomitant]

REACTIONS (1)
  - THROMBOCYTOPENIA [None]
